FAERS Safety Report 9899365 (Version 1)
Quarter: 2014Q1

REPORT INFORMATION
  Report Type: Spontaneous
  Country: ES (occurrence: ES)
  Receive Date: 20140214
  Receipt Date: 20140214
  Transmission Date: 20141002
  Serious: Yes (Death, Other)
  Sender: FDA-Public Use
  Company Number: ES-INCYTE CORPORATION-2014IN000311

PATIENT
  Age: 54 Year
  Sex: Male

DRUGS (5)
  1. INC424 [Suspect]
     Dosage: 20 MG/12 HOUR
     Route: 065
     Dates: start: 201111
  2. INC424 [Suspect]
     Dosage: 10 MG/12 HOUR
     Route: 065
     Dates: start: 201204
  3. INC424 [Suspect]
     Dosage: 15 MG/12 HOUR
     Route: 065
     Dates: start: 201206
  4. INC424 [Suspect]
     Dosage: 20 MG/12 HOUR
     Route: 065
  5. INC424 [Suspect]
     Dosage: 5 MG/12 HOUR
     Route: 065

REACTIONS (4)
  - Acute myeloid leukaemia [Fatal]
  - Haematoma [Unknown]
  - Gamma-glutamyltransferase increased [Unknown]
  - Thrombocytopenia [Not Recovered/Not Resolved]
